FAERS Safety Report 4446103-7 (Version None)
Quarter: 2004Q3

REPORT INFORMATION
  Report Type: 
  Country: None (occurrence: None)
  Receive Date: 20040910
  Receipt Date: 20040312
  Transmission Date: 20050211
  Serious: Yes (Hospitalization)
  Sender: FDA-Public Use
  Company Number: US-AMGEN-KDL069180

PATIENT
  Age: 82 Year
  Sex: Male
  Weight: 81.7 kg

DRUGS (10)
  1. PROCRIT [Suspect]
     Indication: RENAL FAILURE CHRONIC
     Dates: start: 20031201
  2. COUMADIN [Concomitant]
  3. LISINOPRIL [Concomitant]
  4. GLYBURIDE [Concomitant]
  5. ALLOPURINOL [Concomitant]
  6. ATENOLOL [Concomitant]
  7. FUROSEMIDE [Concomitant]
  8. GEMFIBROZIL [Concomitant]
  9. TERAZOSIN HCL [Concomitant]
  10. IRON [Concomitant]

REACTIONS (4)
  - ECZEMA VESICULAR [None]
  - ERYTHEMA [None]
  - OEDEMA PERIPHERAL [None]
  - PRURITUS [None]
